FAERS Safety Report 5914253-1 (Version None)
Quarter: 2008Q4

REPORT INFORMATION
  Report Type: 
  Country: None (occurrence: None)
  Receive Date: 20081009
  Receipt Date: 20080930
  Transmission Date: 20090506
  Serious: Yes (Death)
  Sender: FDA-Public Use
  Company Number: US-ELI_LILLY_AND_COMPANY-US200809006780

PATIENT
  Sex: Male

DRUGS (2)
  1. ZYPREXA [Suspect]
     Dates: start: 20000101
  2. VALIUM [Concomitant]

REACTIONS (4)
  - BIPOLAR DISORDER [None]
  - COMPLETED SUICIDE [None]
  - DYSKINESIA [None]
  - DYSTONIA [None]
